FAERS Safety Report 12763844 (Version 1)
Quarter: 2016Q3

REPORT INFORMATION
  Report Type: Spontaneous
  Country: US (occurrence: US)
  Receive Date: 20160915
  Receipt Date: 20160915
  Transmission Date: 20161109
  Serious: Yes (Hospitalization)
  Sender: FDA-Public Use
  Company Number: None

PATIENT
  Age: 59 Year
  Sex: Female

DRUGS (2)
  1. DOFETILIDE 125MCG MAYNE PHARMA [Suspect]
     Active Substance: DOFETILIDE
     Indication: ATRIAL FLUTTER
     Dosage: 1 CAP OF 125MCG ALONG WITH 1 CAP OF 250MCG (TOTAL DOSE 375MCG) DAILY PO
     Route: 048
     Dates: start: 20160712
  2. DOFETILIDE 250 MCG MAYNE PHARMA [Suspect]
     Active Substance: DOFETILIDE
     Indication: ATRIAL FLUTTER
     Dosage: 1 CAP OF 125MCG ALONG WITH 1 CAP OF 250MCG (TOTAL DOSE 375MCG) DAILY PO
     Route: 048
     Dates: start: 20160712

REACTIONS (2)
  - Arrhythmia [None]
  - Product substitution issue [None]

NARRATIVE: CASE EVENT DATE: 20160725
